FAERS Safety Report 13510651 (Version 1)
Quarter: 2017Q2

REPORT INFORMATION
  Report Type: Spontaneous
  Country: US (occurrence: US)
  Receive Date: 20170503
  Receipt Date: 20170503
  Transmission Date: 20170830
  Serious: Yes (Other)
  Sender: FDA-Public Use
  Company Number: US-PFIZER INC-2017186508

PATIENT
  Sex: Female

DRUGS (1)
  1. XELJANZ XR [Suspect]
     Active Substance: TOFACITINIB CITRATE
     Dosage: 11 MG, DAILY

REACTIONS (10)
  - Sclerodactylia [Unknown]
  - Rash [Unknown]
  - Asthenia [Unknown]
  - Arthralgia [Unknown]
  - Anxiety [Not Recovered/Not Resolved]
  - Joint stiffness [Unknown]
  - Raynaud^s phenomenon [Not Recovered/Not Resolved]
  - Fatigue [Unknown]
  - Scar [Unknown]
  - Headache [Unknown]
